FAERS Safety Report 13077214 (Version 1)
Quarter: 2016Q4

REPORT INFORMATION
  Report Type: Spontaneous
  Country: FR (occurrence: FR)
  Receive Date: 20161230
  Receipt Date: 20161230
  Transmission Date: 20170207
  Serious: Yes (Life-Threatening, Other)
  Sender: FDA-Public Use
  Company Number: FR-ASTRAZENECA-2016SF36533

PATIENT
  Age: 28100 Day
  Sex: Male

DRUGS (14)
  1. KARDEGIC [Suspect]
     Active Substance: ASPIRIN LYSINE
     Indication: ACUTE CORONARY SYNDROME
     Dosage: 75 MG AT NOON
     Route: 048
     Dates: start: 20160919, end: 20161003
  2. NATISPRAY [Concomitant]
     Active Substance: NITROGLYCERIN
  3. LODOZ [Concomitant]
     Active Substance: BISOPROLOL FUMARATE\HYDROCHLOROTHIAZIDE
     Dosage: 10 MG AT NOON
  4. MODOPAR [Concomitant]
     Active Substance: BENSERAZIDE HYDROCHLORIDE\LEVODOPA
     Dosage: 125MG TWICE A DAY (AT 07:30AM AND AT 10:00PM)
  5. STALEVO [Concomitant]
     Active Substance: CARBIDOPA\ENTACAPONE\LEVODOPA
  6. BRILIQUE [Suspect]
     Active Substance: TICAGRELOR
     Indication: ACUTE CORONARY SYNDROME
     Route: 048
     Dates: start: 20160919, end: 20161003
  7. KARDEGIC [Suspect]
     Active Substance: ASPIRIN LYSINE
     Indication: ACUTE CORONARY SYNDROME
     Dosage: 75 MG AT NOON
     Route: 048
     Dates: start: 20161006
  8. MODOPAR [Concomitant]
     Active Substance: BENSERAZIDE HYDROCHLORIDE\LEVODOPA
     Dosage: TWICE A DAY (AT 04:00PM AND AT 05:00PM)
  9. MANTADIX [Concomitant]
     Active Substance: AMANTADINE HYDROCHLORIDE
  10. PANTOPRAZOLE [Concomitant]
     Active Substance: PANTOPRAZOLE SODIUM
  11. PRAVBASTATINE [Concomitant]
  12. STALEVO [Concomitant]
     Active Substance: CARBIDOPA\ENTACAPONE\LEVODOPA
  13. BRILIQUE [Suspect]
     Active Substance: TICAGRELOR
     Indication: ACUTE CORONARY SYNDROME
     Route: 048
     Dates: start: 20161007
  14. LEVOTHYROX [Concomitant]
     Active Substance: LEVOTHYROXINE

REACTIONS (7)
  - Subdural haematoma [Recovering/Resolving]
  - Head injury [Unknown]
  - Blood pressure increased [Unknown]
  - Hemiparesis [Unknown]
  - Anaemia [Recovered/Resolved]
  - Pneumocephalus [Unknown]
  - Fall [Unknown]

NARRATIVE: CASE EVENT DATE: 20161002
